FAERS Safety Report 16325281 (Version 1)
Quarter: 2019Q2

REPORT INFORMATION
  Report Type: Spontaneous
  Country: US (occurrence: US)
  Receive Date: 20190516
  Receipt Date: 20190516
  Transmission Date: 20190711
  Serious: Yes (Hospitalization)
  Sender: FDA-Public Use
  Company Number: None

PATIENT
  Age: 62 Year
  Sex: Female
  Weight: 104 kg

DRUGS (14)
  1. ASPIRIN. [Suspect]
     Active Substance: ASPIRIN
     Indication: PRODUCT USED FOR UNKNOWN INDICATION
     Route: 048
     Dates: end: 20181011
  2. BISACODY 10 MG RECTALLY [Concomitant]
  3. OLANZAPINE 10 MG 3 TIMES DAILY [Concomitant]
  4. FUROSEMIDE 20 MG DAILY [Concomitant]
  5. L-CARNITINE 500 MG TWICE DAILY [Concomitant]
  6. PROPRANOLOL 20 MG TWICE DAILY [Concomitant]
  7. LORAZEPAM 2MG 3 TIMES DAILY AS NEEDED [Concomitant]
  8. ENOXAPARIN [Suspect]
     Active Substance: ENOXAPARIN
     Indication: ATRIAL FIBRILLATION
     Route: 058
     Dates: start: 20181006, end: 20181012
  9. DIVALPROEX 500 DAILY/1000 MG NIGHTLY [Concomitant]
  10. TRAZODONE 50 MG TWICE DAILY [Concomitant]
  11. MELATONIN 3 MG NIGHTLY PRN [Concomitant]
  12. DIGOXIN 125 MCG DAILY [Concomitant]
  13. METOPROLOL 12.5 MG XL TWICE DAILY [Concomitant]
  14. DILTIAZEM DRIP CONTINUOUS [Concomitant]

REACTIONS (3)
  - Haematoma [None]
  - Haematocrit decreased [None]
  - Haemoglobin decreased [None]

NARRATIVE: CASE EVENT DATE: 20181012
